FAERS Safety Report 6673259-8 (Version None)
Quarter: 2010Q2

REPORT INFORMATION
  Report Type: 
  Country: None (occurrence: None)
  Receive Date: 20100408
  Receipt Date: 20100329
  Transmission Date: 20101027
  Serious: Yes (Other)
  Sender: FDA-Public Use
  Company Number: PL-WATSON-2010-04248

PATIENT
  Age: 71 Year
  Sex: Female

DRUGS (1)
  1. DILTIA XT (WATSON LABORATORIES) [Suspect]
     Indication: HYPERTENSION
     Dosage: UNK

REACTIONS (1)
  - ACUTE GENERALISED EXANTHEMATOUS PUSTULOSIS [None]
